FAERS Safety Report 9998030 (Version 1)
Quarter: 2014Q1

REPORT INFORMATION
  Report Type: Spontaneous
  Country: US (occurrence: None)
  Receive Date: 20140224
  Receipt Date: 20140224
  Transmission Date: 20141002
  Serious: Yes (Hospitalization)
  Sender: FDA-Public Use
  Company Number: PHEH2013US006165

PATIENT
  Age: 6 Year
  Sex: Male

DRUGS (6)
  1. TOBI (TOBRAMYCIN) SOL. AEROSOL METERED DOSE INH. [Suspect]
     Indication: CYSTIC FIBROSIS
     Route: 055
     Dates: start: 201209
  2. PULMOZYME (DORNASE ALFA) [Concomitant]
  3. ALBUTEROL (SALBUTAMOL) [Concomitant]
  4. CREON (PANCREATIN) [Concomitant]
  5. ANTACIDS (NO INGREDIENTS/  SUBSTANCES) [Concomitant]
  6. VEST (BORIC ACID, ZINC SULFATE) [Concomitant]

REACTIONS (3)
  - Weight decreased [None]
  - Pulmonary function test decreased [None]
  - Incorrect route of drug administration [None]
